FAERS Safety Report 21442011 (Version 1)
Quarter: 2022Q4

REPORT INFORMATION
  Report Type: Spontaneous
  Country: US (occurrence: US)
  Receive Date: 20221011
  Receipt Date: 20221011
  Transmission Date: 20230113
  Serious: No
  Sender: FDA-Public Use
  Company Number: US-Sprout Pharmaceuticals, Inc.-2022SP000003

PATIENT
  Age: 70 Year
  Sex: Female
  Weight: 63.560 kg

DRUGS (12)
  1. ADDYI [Suspect]
     Active Substance: FLIBANSERIN
     Indication: Libido decreased
     Route: 048
     Dates: start: 202110, end: 20220103
  2. METFORMIN [Concomitant]
     Active Substance: METFORMIN HYDROCHLORIDE
     Indication: Type 2 diabetes mellitus
     Route: 048
  3. PREMARIN [Concomitant]
     Active Substance: ESTROGENS, CONJUGATED
     Indication: Vulvovaginal dryness
     Route: 067
  4. MESALAMINE [Concomitant]
     Active Substance: MESALAMINE
     Indication: Colitis ulcerative
     Dosage: 4 CAPSULES
     Route: 048
  5. MELOXICAM [Concomitant]
     Active Substance: MELOXICAM
     Indication: Arthritis
     Route: 048
  6. SERTRALINE [Concomitant]
     Active Substance: SERTRALINE HYDROCHLORIDE
     Indication: Depression
     Route: 048
  7. ROSUVASTATIN [Concomitant]
     Active Substance: ROSUVASTATIN
     Indication: Blood cholesterol increased
     Route: 048
  8. EZETIMIBE [Concomitant]
     Active Substance: EZETIMIBE
     Indication: Blood cholesterol increased
     Route: 048
  9. ACYCLOVIR [Concomitant]
     Active Substance: ACYCLOVIR
     Indication: Genital herpes
     Route: 048
  10. COVID-19 VACCINE [Concomitant]
     Indication: COVID-19 immunisation
     Dosage: COVID VACCINES
     Route: 030
  11. COVID-19 VACCINE [Concomitant]
     Dosage: BOOSTER
     Route: 030
     Dates: start: 202109, end: 202109
  12. d-amphetamine salt combo [Concomitant]
     Indication: Attention deficit hyperactivity disorder
     Route: 048

REACTIONS (4)
  - COVID-19 [Unknown]
  - Malaise [Unknown]
  - Drug ineffective for unapproved indication [Unknown]
  - Product use in unapproved indication [Recovered/Resolved]

NARRATIVE: CASE EVENT DATE: 20211001
